FAERS Safety Report 9014421 (Version 3)
Quarter: 2013Q2

REPORT INFORMATION
  Report Type: Spontaneous
  Country: US (occurrence: US)
  Receive Date: 20130115
  Receipt Date: 20130524
  Transmission Date: 20140414
  Serious: Yes (Other)
  Sender: FDA-Public Use
  Company Number: US-FRI-1000041625

PATIENT
  Age: 68 Year
  Sex: Female
  Weight: 83 kg

DRUGS (3)
  1. TUDORZA PRESSAIR [Suspect]
     Indication: ASTHMA
     Dosage: 400 MCG BID
     Route: 055
     Dates: start: 20121228, end: 20130113
  2. FEXOFENADINE [Concomitant]
     Dosage: 180 MG
  3. LOPERAMIDE [Concomitant]
     Dosage: 2 MG

REACTIONS (2)
  - Eye pain [Recovered/Resolved]
  - Off label use [Recovered/Resolved]
